FAERS Safety Report 16070039 (Version 1)
Quarter: 2019Q1

REPORT INFORMATION
  Report Type: Spontaneous
  Country: US (occurrence: US)
  Receive Date: 20190314
  Receipt Date: 20190314
  Transmission Date: 20190418
  Serious: No
  Sender: FDA-Public Use
  Company Number: US-TEVA-2019-US-1012710

PATIENT
  Sex: Female

DRUGS (1)
  1. ARMODAFINIL. [Suspect]
     Active Substance: ARMODAFINIL
     Indication: HYPERSOMNIA
     Route: 065
     Dates: end: 2017

REACTIONS (3)
  - Rash generalised [Unknown]
  - Product substitution issue [Unknown]
  - Dermatitis allergic [Unknown]
